FAERS Safety Report 25760449 (Version 3)
Quarter: 2025Q4

REPORT INFORMATION
  Report Type: Report from Study
  Country: CA (occurrence: None)
  Receive Date: 20250904
  Receipt Date: 20251016
  Transmission Date: 20260118
  Serious: Yes (Other)
  Sender: ORION
  Company Number: CA-PFIZER INC-202500174420

PATIENT
  Age: 31 Year
  Sex: Female
  Weight: 67 kg

DRUGS (6)
  1. METHOTREXATE [Suspect]
     Active Substance: METHOTREXATE
     Indication: Product used for unknown indication
  2. REMICADE [Suspect]
     Active Substance: INFLIXIMAB
     Indication: Crohn^s disease
     Dosage: CYCLICAL
  3. REMICADE [Suspect]
     Active Substance: INFLIXIMAB
  4. REMICADE [Suspect]
     Active Substance: INFLIXIMAB
  5. REMICADE [Suspect]
     Active Substance: INFLIXIMAB
  6. LEFLUNOMIDE [Suspect]
     Active Substance: LEFLUNOMIDE
     Indication: Product used for unknown indication

REACTIONS (9)
  - Anaemia [Recovering/Resolving]
  - Fatigue [Recovering/Resolving]
  - Vomiting [Recovering/Resolving]
  - Arthritis [Recovering/Resolving]
  - Joint injury [Recovering/Resolving]
  - Meniscus injury [Recovering/Resolving]
  - Constipation [Recovering/Resolving]
  - Off label use [Unknown]
  - Inappropriate schedule of product administration [Unknown]
